FAERS Safety Report 16734533 (Version 2)
Quarter: 2020Q1

REPORT INFORMATION
  Report Type: Spontaneous
  Country: GB (occurrence: GB)
  Receive Date: 20190823
  Receipt Date: 20200109
  Transmission Date: 20200409
  Serious: Yes (Death, Hospitalization, Other)
  Sender: FDA-Public Use
  Company Number: GB-AUROBINDO-AUR-APL-2019-055139

PATIENT
  Age: 50 Year
  Sex: Female

DRUGS (6)
  1. CYCLIZINE [Concomitant]
     Active Substance: CYCLIZINE
     Indication: PRODUCT USED FOR UNKNOWN INDICATION
     Dosage: UNK
     Route: 065
  2. DEXAMETHASONE. [Concomitant]
     Active Substance: DEXAMETHASONE
     Indication: PRODUCT USED FOR UNKNOWN INDICATION
     Dosage: UNK
     Route: 065
  3. DICLOFENAC [Concomitant]
     Active Substance: DICLOFENAC
     Indication: PRODUCT USED FOR UNKNOWN INDICATION
     Dosage: UNK (FOR SEVERAL WEEKS BEFORE ADMISSION)
     Route: 065
  4. METHADONE [Concomitant]
     Active Substance: METHADONE HYDROCHLORIDE
     Indication: PRODUCT USED FOR UNKNOWN INDICATION
     Dosage: UNK
     Route: 065
  5. TINZAPARIN [Concomitant]
     Active Substance: TINZAPARIN
     Indication: PRODUCT USED FOR UNKNOWN INDICATION
     Dosage: UNK
     Route: 065
  6. GABAPENTIN. [Suspect]
     Active Substance: GABAPENTIN
     Indication: NEURALGIA
     Dosage: 2400 MILLIGRAM, ONCE A DAY
     Route: 048
     Dates: start: 20190220, end: 20190305

REACTIONS (11)
  - Dyskinesia [Unknown]
  - Vomiting [Unknown]
  - Oxygen saturation decreased [Unknown]
  - Speech disorder [Unknown]
  - Blood pressure decreased [Unknown]
  - Coordination abnormal [Unknown]
  - Somnolence [Unknown]
  - Acute respiratory failure [Fatal]
  - Toxicity to various agents [Not Recovered/Not Resolved]
  - Pyrexia [Unknown]
  - Renal impairment [Unknown]

NARRATIVE: CASE EVENT DATE: 20190305
